FAERS Safety Report 24762090 (Version 1)
Quarter: 2024Q4

REPORT INFORMATION
  Report Type: Spontaneous
  Country: IT (occurrence: IT)
  Receive Date: 20241221
  Receipt Date: 20241221
  Transmission Date: 20250115
  Serious: Yes (Death)
  Sender: ROCHE
  Company Number: None

PATIENT
  Age: 40 Year
  Sex: Female

DRUGS (2)
  1. PHESGO [Suspect]
     Active Substance: HYALURONIDASE-ZZXF\PERTUZUMAB\TRASTUZUMAB
     Indication: HER2 positive breast cancer
     Dosage: PHESGO 1200 MG/600 MG SOLUTION FOR INJECTION SUBCUTANEOUS USE 1 VIAL 15 ML?LOADING DOSE: 1200 MG PER
     Route: 058
     Dates: start: 20241025, end: 20241025
  2. PACLITAXEL [Suspect]
     Active Substance: PACLITAXEL
     Indication: HER2 positive breast cancer
     Dosage: PACLITAXEL AUROBINDO 6 MG/ML CONCENTRATE FOR SOLUTION. FOR INFUSION 1 VIAL. 50ML
     Route: 042
     Dates: start: 20241025, end: 20241025

REACTIONS (1)
  - Cardiac failure [Fatal]

NARRATIVE: CASE EVENT DATE: 20241025
